FAERS Safety Report 13660198 (Version 2)
Quarter: 2017Q2

REPORT INFORMATION
  Report Type: Report from Study
  Country: None (occurrence: TW)
  Receive Date: 20170616
  Receipt Date: 20170622
  Transmission Date: 20170830
  Serious: Yes (Death, Hospitalization, Other)
  Sender: FDA-Public Use
  Company Number: TW-ABBVIE-17K-153-2008514-00

PATIENT
  Age: 50 Year
  Sex: Male
  Weight: 53.4 kg

DRUGS (3)
  1. HUMIRA [Suspect]
     Active Substance: ADALIMUMAB
     Indication: ANKYLOSING SPONDYLITIS
     Route: 058
     Dates: start: 20150805, end: 20170531
  2. CELEBREX [Concomitant]
     Active Substance: CELECOXIB
     Indication: ANKYLOSING SPONDYLITIS
     Route: 048
     Dates: start: 20170517, end: 20170613
  3. METHYLPREDNISOLONE. [Concomitant]
     Active Substance: METHYLPREDNISOLONE
     Indication: ANKYLOSING SPONDYLITIS
     Route: 048
     Dates: start: 20150318, end: 20170613

REACTIONS (5)
  - Syncope [Unknown]
  - Haemodialysis [Unknown]
  - Procedural hypotension [Recovered/Resolved]
  - Procedural dizziness [Recovered/Resolved]
  - Death [Fatal]

NARRATIVE: CASE EVENT DATE: 20170607
